FAERS Safety Report 19812605 (Version 1)
Quarter: 2021Q3

REPORT INFORMATION
  Report Type: Report from Study
  Country: US (occurrence: US)
  Receive Date: 20210910
  Receipt Date: 20210910
  Transmission Date: 20211014
  Serious: Yes (Other)
  Sender: FDA-Public Use
  Company Number: US-GILEAD-2021-0547800

PATIENT
  Age: 43 Year
  Sex: Male

DRUGS (1)
  1. AZTREONAM LYSINE [Suspect]
     Active Substance: AZTREONAM LYSINE
     Indication: CYSTIC FIBROSIS
     Dosage: VIAL VIA ALTERA NEBULIZER , TID, 28 DAYS ON AND 28 DAYS OFF
     Route: 055

REACTIONS (2)
  - Renal stone removal [Unknown]
  - Pain [Unknown]

NARRATIVE: CASE EVENT DATE: 202108
